FAERS Safety Report 8758394 (Version 1)
Quarter: 2012Q4

REPORT INFORMATION
  Report Type: Spontaneous
  Country: US (occurrence: None)
  Receive Date: 20120828
  Receipt Date: 20120828
  Transmission Date: 20130627
  Serious: Yes (Other)
  Sender: FDA-Public Use
  Company Number: None

PATIENT
  Age: 56 Year
  Sex: Female
  Weight: 88.91 kg

DRUGS (2)
  1. VICTOZA [Suspect]
     Dosage: 1.2 mg under skin once/morning sq
     Route: 058
     Dates: start: 20110715, end: 20120130
  2. DEVICE [Suspect]

REACTIONS (7)
  - Nausea [None]
  - Diarrhoea [None]
  - Vomiting [None]
  - Gastrointestinal pain [None]
  - Proctalgia [None]
  - Bone pain [None]
  - Haemorrhoids [None]
